FAERS Safety Report 21192819 (Version 1)
Quarter: 2022Q3

REPORT INFORMATION
  Report Type: Spontaneous
  Country: US (occurrence: US)
  Receive Date: 20220810
  Receipt Date: 20220810
  Transmission Date: 20221026
  Serious: No
  Sender: FDA-Public Use
  Company Number: US-APOTEX-2022AP010244

PATIENT
  Age: 43 Year
  Sex: Male

DRUGS (4)
  1. FLUTICASONE PROPIONATE [Suspect]
     Active Substance: FLUTICASONE PROPIONATE
     Indication: Sinus congestion
     Dosage: 2 DOSAGE FORM, QD (1 SPRAY IN EACH NOSTRIL ONCE A DAY)
     Route: 045
     Dates: start: 202207, end: 20220717
  2. FLUTICASONE PROPIONATE [Suspect]
     Active Substance: FLUTICASONE PROPIONATE
     Indication: Sinus headache
  3. ALBUTEROL [Concomitant]
     Active Substance: ALBUTEROL
     Indication: Asthma
     Dosage: UNK, PRN
  4. DORZOLAMIDE [Concomitant]
     Active Substance: DORZOLAMIDE
     Indication: Glaucoma
     Dosage: UNK, BID (TWICE A DAY EVERY 12 HOURS ON BOTH EYES)
     Route: 047

REACTIONS (4)
  - Facial discomfort [Recovering/Resolving]
  - Head discomfort [Recovered/Resolved]
  - Intentional product use issue [Unknown]
  - Parosmia [Recovering/Resolving]

NARRATIVE: CASE EVENT DATE: 20220701
